FAERS Safety Report 6879812-0 (Version None)
Quarter: 2010Q3

REPORT INFORMATION
  Report Type: 
  Country: None (occurrence: None)
  Receive Date: 20100728
  Receipt Date: 20100714
  Transmission Date: 20110219
  Serious: Yes (Hospitalization)
  Sender: FDA-Public Use
  Company Number: IT-MYLANLABS-2010S1012551

PATIENT
  Age: 11 Year
  Sex: Male

DRUGS (3)
  1. VALPROIC ACID [Suspect]
     Indication: EPILEPSY
     Route: 065
  2. DEPAKENE [Suspect]
     Indication: EPILEPSY
     Route: 065
  3. LAMICTAL [Concomitant]
     Indication: EPILEPSY
     Route: 065

REACTIONS (1)
  - HYPOCALCAEMIA [None]
